FAERS Safety Report 8326933-1 (Version None)
Quarter: 2012Q2

REPORT INFORMATION
  Report Type: 
  Country: None (occurrence: None)
  Receive Date: 20120501
  Receipt Date: 20120426
  Transmission Date: 20120825
  Serious: Yes (Hospitalization, Other)
  Sender: FDA-Public Use
  Company Number: US-ELI_LILLY_AND_COMPANY-US201204009853

PATIENT
  Age: 70 Year
  Sex: Female

DRUGS (7)
  1. LANTUS [Concomitant]
     Dosage: 35 U, EACH EVENING
  2. WARFARIN SODIUM [Concomitant]
     Dosage: UNK, EACH EVENING
  3. GLIMEPIRIDE [Concomitant]
     Dosage: 5 MG, EACH MORNING
  4. HUMALOG MIX 75/25 [Suspect]
     Indication: DIABETES MELLITUS
     Dosage: 15 U, BID
     Dates: start: 20111212
  5. METFORMIN HCL [Concomitant]
     Dosage: 1000 DF, EACH EVENING
  6. INSULIN [Concomitant]
  7. HUMALOG MIX 75/25 [Suspect]
     Dosage: UNK, PRN
     Dates: start: 20111212

REACTIONS (17)
  - KNEE ARTHROPLASTY [None]
  - EAR OPERATION [None]
  - HYPERHIDROSIS [None]
  - INJECTION SITE HAEMATOMA [None]
  - TREMOR [None]
  - BLOOD GLUCOSE INCREASED [None]
  - MUSCULAR WEAKNESS [None]
  - BLOOD GLUCOSE DECREASED [None]
  - DEAFNESS UNILATERAL [None]
  - HOSPITALISATION [None]
  - HYPOACUSIS [None]
  - SCAR [None]
  - BLOOD GLUCOSE ABNORMAL [None]
  - SURGERY [None]
  - FISTULA [None]
  - SHOULDER ARTHROPLASTY [None]
  - HYPOGLYCAEMIA UNAWARENESS [None]
